FAERS Safety Report 5389808-6 (Version None)
Quarter: 2007Q3

REPORT INFORMATION
  Report Type: 
  Country: None (occurrence: None)
  Receive Date: 20070718
  Receipt Date: 20070705
  Transmission Date: 20080115
  Serious: No
  Sender: FDA-Public Use
  Company Number: PHBS2007CA11444

PATIENT
  Age: 4 Year
  Sex: Female

DRUGS (1)
  1. PAMIDRONATE DISODIUM [Suspect]
     Indication: OSTEOMYELITIS
     Dosage: 0.5 MG/KG AND 1 MG/KG ONE DAY APART
     Route: 042

REACTIONS (4)
  - HYPOCALCAEMIA [None]
  - NAUSEA [None]
  - OSTEOMYELITIS [None]
  - PYREXIA [None]
